FAERS Safety Report 8696815 (Version 2)
Quarter: 2013Q4

REPORT INFORMATION
  Report Type: Report from Study
  Country: FR (occurrence: FR)
  Receive Date: 20120801
  Receipt Date: 20131031
  Transmission Date: 20140711
  Serious: Yes (Hospitalization)
  Sender: FDA-Public Use
  Company Number: FR-009507513-1104FRA00077

PATIENT
  Age: 68 Year
  Sex: Male
  Weight: 69 kg

DRUGS (8)
  1. VORINOSTAT-MYCOSIS FUNGOIDES [Suspect]
     Indication: MYELODYSPLASTIC SYNDROME
     Dosage: 400 MG, QD
     Route: 048
     Dates: start: 20110215, end: 20110228
  2. VORINOSTAT-MYCOSIS FUNGOIDES [Suspect]
     Dosage: 400 MG, QD
     Route: 048
     Dates: start: 20110321, end: 20110403
  3. ARACYTINE [Suspect]
     Dosage: 18.4 MG, QD
     Route: 058
     Dates: start: 20110215, end: 20110228
  4. ARACYTINE [Suspect]
     Dosage: 36.8 MG, QD
     Route: 058
     Dates: start: 20110321, end: 20110406
  5. PRETERAX (INDAPAMIDE (+) PERINDOPRIL ERBUMINE) [Concomitant]
     Indication: HYPERTENSION
     Dosage: 2 DF, QD
     Route: 048
     Dates: end: 20110314
  6. PLAVIX [Concomitant]
     Dosage: 1 DF, QD
     Route: 048
  7. VFEND [Concomitant]
     Indication: PROPHYLAXIS
     Dosage: 400 MG, QD
     Route: 048
     Dates: end: 20110316
  8. OMEPRAZOLE [Concomitant]
     Indication: PROPHYLAXIS
     Dosage: 20 MG, QD

REACTIONS (5)
  - Hyperthermia [Not Recovered/Not Resolved]
  - Thrombocytopenia [Not Recovered/Not Resolved]
  - Anaemia [Not Recovered/Not Resolved]
  - General physical health deterioration [Not Recovered/Not Resolved]
  - Embolism [Recovered/Resolved]
